FAERS Safety Report 12162101 (Version 4)
Quarter: 2016Q3

REPORT INFORMATION
  Report Type: Report from Study
  Country: US (occurrence: US)
  Receive Date: 20160309
  Receipt Date: 20160725
  Transmission Date: 20161109
  Serious: Yes (Other)
  Sender: FDA-Public Use
  Company Number: PHEH2016US005396

PATIENT
  Age: 32 Year
  Sex: Male
  Weight: 80.73 kg

DRUGS (1)
  1. GILENYA [Suspect]
     Active Substance: FINGOLIMOD HYDROCHLORIDE
     Indication: MULTIPLE SCLEROSIS
     Dosage: 0.5 MG, QD
     Route: 048
     Dates: start: 2011

REACTIONS (9)
  - Blindness unilateral [Unknown]
  - Multiple sclerosis relapse [Recovering/Resolving]
  - Cerebrovascular accident [Recovering/Resolving]
  - Drooling [Unknown]
  - Anxiety [Unknown]
  - Seizure [Recovering/Resolving]
  - Gait disturbance [Recovering/Resolving]
  - Stress [Unknown]
  - Muscular weakness [Unknown]

NARRATIVE: CASE EVENT DATE: 20160302
